FAERS Safety Report 5235670-1 (Version None)
Quarter: 2007Q1

REPORT INFORMATION
  Report Type: 
  Country: None (occurrence: None)
  Receive Date: 20070212
  Receipt Date: 20070202
  Transmission Date: 20070707
  Serious: Yes (Other)
  Sender: FDA-Public Use
  Company Number: GB-GLAXOSMITHKLINE-B0457847A

PATIENT
  Age: 21 Year
  Sex: Male
  Weight: 70 kg

DRUGS (5)
  1. AUGMENTIN '125' [Suspect]
     Indication: WOUND INFECTION
     Dosage: 600MG UNKNOWN
     Route: 048
     Dates: start: 20061205, end: 20061219
  2. ALLOPURINOL SODIUM [Concomitant]
     Dosage: 300MG PER DAY
     Route: 048
  3. ATENOLOL [Concomitant]
     Dosage: 50MG PER DAY
     Route: 048
  4. FRUSEMIDE [Concomitant]
     Dosage: 20MG PER DAY
     Route: 048
  5. MELOXICAM [Concomitant]
     Dosage: 7.5MG PER DAY
     Route: 048

REACTIONS (5)
  - ALANINE AMINOTRANSFERASE INCREASED [None]
  - ASPARTATE AMINOTRANSFERASE INCREASED [None]
  - BLOOD ALKALINE PHOSPHATASE INCREASED [None]
  - GAMMA-GLUTAMYLTRANSFERASE INCREASED [None]
  - LIVER FUNCTION TEST ABNORMAL [None]
